FAERS Safety Report 9671460 (Version 1)
Quarter: 2013Q4

REPORT INFORMATION
  Report Type: Spontaneous
  Country: US (occurrence: None)
  Receive Date: 20131105
  Receipt Date: 20131105
  Transmission Date: 20140711
  Serious: No
  Sender: FDA-Public Use
  Company Number: None

PATIENT
  Age: 26 Year
  Sex: Female
  Weight: 58.97 kg

DRUGS (1)
  1. MINOCYCLINE [Suspect]
     Indication: ACNE
     Dosage: 1 PILL TWICE DAILY TAKEN BY MOUTH
     Dates: start: 20130816, end: 20130916

REACTIONS (2)
  - Vulvovaginal mycotic infection [None]
  - Pruritus [None]
